FAERS Safety Report 13292654 (Version 1)
Quarter: 2017Q1

REPORT INFORMATION
  Report Type: Spontaneous
  Country: US (occurrence: US)
  Receive Date: 20170303
  Receipt Date: 20170303
  Transmission Date: 20170428
  Serious: Yes (Other)
  Sender: FDA-Public Use
  Company Number: None

PATIENT
  Age: 23 Year
  Sex: Female
  Weight: 63 kg

DRUGS (2)
  1. INVANZ [Suspect]
     Active Substance: ERTAPENEM SODIUM
     Indication: APPENDICITIS
     Dosage: ?          OTHER FREQUENCY:200 CC/HR;?
     Route: 041
     Dates: start: 20170223, end: 20170224
  2. PHENERGAN [Suspect]
     Active Substance: PROMETHAZINE HYDROCHLORIDE
     Indication: NAUSEA
     Dosage: 25 MG/ 1CC
     Route: 042
     Dates: start: 20170223, end: 20170223

REACTIONS (3)
  - Therapy cessation [None]
  - Product deposit [None]
  - Nausea [None]

NARRATIVE: CASE EVENT DATE: 20170223
